FAERS Safety Report 7716401-X (Version None)
Quarter: 2011Q3

REPORT INFORMATION
  Report Type: 
  Country: None (occurrence: None)
  Receive Date: 20110829
  Receipt Date: 20110817
  Transmission Date: 20111222
  Serious: Yes (Disabling, Other)
  Sender: FDA-Public Use
  Company Number: US-MERCK-1103USA03950

PATIENT
  Age: 66 Year
  Sex: Female
  Weight: 70 kg

DRUGS (4)
  1. FOSAMAX [Suspect]
     Indication: OSTEOPOROSIS
     Route: 048
     Dates: start: 20000101, end: 20100101
  2. FOSAMAX [Suspect]
     Route: 048
     Dates: start: 20080109
  3. FOSAMAX PLUS D [Suspect]
     Indication: OSTEOPOROSIS
     Route: 048
     Dates: start: 20090114
  4. CENTRUM SILVER [Concomitant]
     Route: 065

REACTIONS (15)
  - INAPPROPRIATE SCHEDULE OF DRUG ADMINISTRATION [None]
  - NOCTURIA [None]
  - CARDIAC MURMUR [None]
  - OSTEOARTHRITIS [None]
  - CARPAL TUNNEL SYNDROME [None]
  - BONE DISORDER [None]
  - BRONCHITIS [None]
  - BLOOD CREATININE INCREASED [None]
  - FEMUR FRACTURE [None]
  - BACK PAIN [None]
  - HYPERCALCAEMIA [None]
  - ADVERSE DRUG REACTION [None]
  - ARTHRITIS [None]
  - PAIN IN EXTREMITY [None]
  - FALL [None]
